FAERS Safety Report 6696739-8 (Version None)
Quarter: 2010Q2

REPORT INFORMATION
  Report Type: 
  Country: None (occurrence: None)
  Receive Date: 20100426
  Receipt Date: 20100420
  Transmission Date: 20101027
  Serious: Yes (Hospitalization)
  Sender: FDA-Public Use
  Company Number: US-MYLANLABS-2010S1003208

PATIENT
  Age: 46 Year
  Sex: Female

DRUGS (9)
  1. PHENYTOIN SODIUM [Suspect]
     Indication: GRAND MAL CONVULSION
     Route: 048
     Dates: start: 20070101, end: 20091001
  2. PHENYTOIN SODIUM [Interacting]
     Indication: EPILEPSY
     Route: 048
     Dates: start: 20070101, end: 20091001
  3. DILANTIN [Interacting]
     Indication: GRAND MAL CONVULSION
     Route: 048
     Dates: start: 19780101, end: 20070101
  4. DILANTIN [Interacting]
     Dates: start: 20091001
  5. FOLIC ACID [Interacting]
     Route: 048
  6. SUDAFED 12 HOUR [Concomitant]
  7. NICORETTE CLASSIC [Concomitant]
  8. MULTI-VITAMIN [Concomitant]
  9. BIOFLAVONOIDS [Concomitant]

REACTIONS (7)
  - ANTICONVULSANT DRUG LEVEL BELOW THERAPEUTIC [None]
  - DRUG DISPENSING ERROR [None]
  - DRUG INEFFECTIVE [None]
  - DRUG INTERACTION [None]
  - GRAND MAL CONVULSION [None]
  - HUMERUS FRACTURE [None]
  - ROTATOR CUFF SYNDROME [None]
